FAERS Safety Report 10246137 (Version 1)
Quarter: 2014Q2

REPORT INFORMATION
  Report Type: Spontaneous
  Country: US (occurrence: None)
  Receive Date: 20140617
  Receipt Date: 20140617
  Transmission Date: 20141212
  Serious: Yes (Other)
  Sender: FDA-Public Use
  Company Number: None

PATIENT
  Age: 20 Year
  Sex: Female
  Weight: 88.45 kg

DRUGS (1)
  1. PROMETHAZINE [Suspect]
     Indication: BRONCHITIS
     Route: 048
     Dates: start: 20131114, end: 20131114

REACTIONS (1)
  - Convulsion [None]
